FAERS Safety Report 10040263 (Version 7)
Quarter: 2014Q4

REPORT INFORMATION
  Report Type: Spontaneous
  Country: BE (occurrence: BE)
  Receive Date: 20140327
  Receipt Date: 20141001
  Transmission Date: 20150528
  Serious: Yes (Other)
  Sender: FDA-Public Use
  Company Number: BE-MERCK-1403BEL006488

PATIENT
  Age: 49 Year
  Sex: Female
  Weight: 50 kg

DRUGS (7)
  1. DAFALGAN [Concomitant]
     Active Substance: ACETAMINOPHEN
  2. PEGINTRON [Suspect]
     Active Substance: PEGINTERFERON ALFA-2B
     Dosage: CLEARCLICK PEN, DOSE 0.25 ML, 80MCG, WEEKLY
     Dates: start: 20140603, end: 20140912
  3. REBETOL [Suspect]
     Active Substance: RIBAVIRIN
     Dosage: BID, TOTAL DAILY DOSE 600 MG
     Route: 048
     Dates: start: 20140404, end: 20140912
  4. VICTRELIS [Suspect]
     Active Substance: BOCEPREVIR
     Indication: HEPATITIS C
     Dosage: 2400 MG DAILY
     Route: 048
     Dates: start: 20140401, end: 20140820
  5. REBETOL [Suspect]
     Active Substance: RIBAVIRIN
     Indication: HEPATITIS C
     Dosage: BID, TOTAL DAILY DOSE 800MG
     Route: 048
     Dates: start: 20140304, end: 20140403
  6. PEGINTRON [Suspect]
     Active Substance: PEGINTERFERON ALFA-2B
     Indication: HEPATITIS C
     Dosage: REDIPEN 80 MCG, WEEKLY
     Dates: start: 20140304, end: 20140602
  7. PEGINTRON [Suspect]
     Active Substance: PEGINTERFERON ALFA-2B
     Indication: HEPATITIS C
     Dosage: CLEARCLICK PEN, 0.3 ML
     Dates: start: 201408, end: 201408

REACTIONS (34)
  - Weight increased [Unknown]
  - Muscle tone disorder [Unknown]
  - Influenza [Not Recovered/Not Resolved]
  - Decreased appetite [Recovering/Resolving]
  - Eye swelling [Recovered/Resolved]
  - Feeling cold [Recovered/Resolved]
  - Red blood cell count decreased [Unknown]
  - Depression [Unknown]
  - Alopecia [Not Recovered/Not Resolved]
  - Drug dose omission [Unknown]
  - Weight decreased [Recovering/Resolving]
  - Injection site pain [Not Recovered/Not Resolved]
  - Inappropriate schedule of drug administration [Unknown]
  - Back pain [Not Recovered/Not Resolved]
  - Memory impairment [Unknown]
  - Anaemia [Not Recovered/Not Resolved]
  - Injection site erythema [Not Recovered/Not Resolved]
  - Eye irritation [Not Recovered/Not Resolved]
  - Ageusia [Not Recovered/Not Resolved]
  - Pallor [Unknown]
  - Thirst [Recovering/Resolving]
  - Feeling abnormal [Unknown]
  - Dry skin [Not Recovered/Not Resolved]
  - Pyrexia [Recovered/Resolved]
  - Personality change [Not Recovered/Not Resolved]
  - Fatigue [Not Recovered/Not Resolved]
  - Injection site reaction [Not Recovered/Not Resolved]
  - Pruritus [Recovering/Resolving]
  - Migraine [Recovered/Resolved]
  - Overdose [Unknown]
  - Seizure [Unknown]
  - Tremor [Recovered/Resolved]
  - Anxiety [Unknown]
  - Headache [Recovered/Resolved]

NARRATIVE: CASE EVENT DATE: 2014
